FAERS Safety Report 4896420-1 (Version None)
Quarter: 2006Q1

REPORT INFORMATION
  Report Type: 
  Country: None (occurrence: None)
  Receive Date: 20060126
  Receipt Date: 20060118
  Transmission Date: 20060701
  Serious: Yes (Other)
  Sender: FDA-Public Use
  Company Number: 2006009470

PATIENT
  Sex: Female

DRUGS (5)
  1. LYRICA [Suspect]
     Indication: EPILEPSY
     Dosage: 150 MG (75 MG, 2 IN 1 D)
     Dates: start: 20051207, end: 20060112
  2. TEGRETOL [Concomitant]
  3. CLONAZEPAM [Concomitant]
  4. KEPPRA [Concomitant]
  5. LUVOX [Concomitant]

REACTIONS (5)
  - ABNORMAL BEHAVIOUR [None]
  - CONVULSION [None]
  - FEELING ABNORMAL [None]
  - INSOMNIA [None]
  - MOANING [None]
